FAERS Safety Report 24347117 (Version 2)
Quarter: 2024Q4

REPORT INFORMATION
  Report Type: Report from Study
  Country: US (occurrence: US)
  Receive Date: 20240921
  Receipt Date: 20241001
  Transmission Date: 20250115
  Serious: Yes (Other)
  Sender: ABBVIE
  Company Number: US-ABBVIE-5929063

PATIENT
  Age: 67 Year
  Sex: Female
  Weight: 58.966 kg

DRUGS (14)
  1. HUMIRA [Suspect]
     Active Substance: ADALIMUMAB
     Indication: Arthritis
     Dosage: CITRATE FREE
     Route: 058
     Dates: start: 20240913
  2. HUMIRA [Suspect]
     Active Substance: ADALIMUMAB
     Dosage: CITRATE FREE
     Route: 058
     Dates: start: 202405, end: 20240628
  3. HUMIRA [Suspect]
     Active Substance: ADALIMUMAB
     Dosage: CITRATE FREE
     Route: 058
     Dates: start: 20240913
  4. COZAAR [Concomitant]
     Active Substance: LOSARTAN POTASSIUM
     Indication: Blood pressure measurement
  5. CYMBALTA [Concomitant]
     Active Substance: DULOXETINE HYDROCHLORIDE
     Indication: Depression
  6. BUMETANIDE [Concomitant]
     Active Substance: BUMETANIDE
     Indication: Oedema
  7. LORAZEPAM [Concomitant]
     Active Substance: LORAZEPAM
     Indication: Anxiety
  8. ALBUTEROL [Concomitant]
     Active Substance: ALBUTEROL
     Indication: Multiple allergies
     Dosage: TIME INTERVAL: AS NECESSARY
  9. FIORICET [Concomitant]
     Active Substance: ACETAMINOPHEN\BUTALBITAL\CAFFEINE
     Indication: Migraine
  10. RIZATRIPTAN BENZOATE [Concomitant]
     Active Substance: RIZATRIPTAN BENZOATE
     Indication: Migraine
  11. NATURE-THROID [Concomitant]
     Active Substance: THYROID, PORCINE
     Indication: Thyroid disorder
  12. EZETIMIBE [Concomitant]
     Active Substance: EZETIMIBE
     Indication: Blood cholesterol
  13. CARISOPRODOL [Concomitant]
     Active Substance: CARISOPRODOL
     Indication: Myalgia
  14. PROGESTERONE [Concomitant]
     Active Substance: PROGESTERONE
     Indication: Product used for unknown indication

REACTIONS (6)
  - Device breakage [Recovered/Resolved]
  - Arthritis [Not Recovered/Not Resolved]
  - Sinusitis [Recovered/Resolved]
  - Implant site extravasation [Recovering/Resolving]
  - Impaired healing [Recovering/Resolving]
  - Musculoskeletal disorder [Not Recovered/Not Resolved]

NARRATIVE: CASE EVENT DATE: 20240610
